FAERS Safety Report 25466819 (Version 2)
Quarter: 2025Q4

REPORT INFORMATION
  Report Type: Other
  Country: GB (occurrence: GB)
  Receive Date: 20250623
  Receipt Date: 20251222
  Transmission Date: 20260117
  Serious: Yes (Hospitalization)
  Sender: ASPEN
  Company Number: GB-TAKEDA-2020TUS038404

PATIENT

DRUGS (40)
  1. DEXAMETHASONE [Suspect]
     Active Substance: DEXAMETHASONE
     Indication: Product used for unknown indication
     Dosage: 10 MG, QD ; THIRD REGIMEN
     Route: 065
  2. DEXAMETHASONE [Suspect]
     Active Substance: DEXAMETHASONE
     Indication: Plasma cell myeloma refractory
     Dosage: 10 MG, QD ; FOURTH REGIMEN
     Route: 065
  3. DEXAMETHASONE [Suspect]
     Active Substance: DEXAMETHASONE
     Dosage: 10 MG, QD ; FIFTH REGIMEN
     Route: 065
  4. DEXAMETHASONE [Suspect]
     Active Substance: DEXAMETHASONE
     Dosage: 10 MG, QD ; SIXTH REGIMEN
     Route: 065
  5. DEXAMETHASONE [Suspect]
     Active Substance: DEXAMETHASONE
     Dosage: 10 MG, QD; SECOND REGIMEN
     Route: 065
  6. DEXAMETHASONE [Suspect]
     Active Substance: DEXAMETHASONE
     Dosage: 10 MILLIGRAM, 1 DOSE WEEKLY
     Route: 065
  7. DEXAMETHASONE [Suspect]
     Active Substance: DEXAMETHASONE
     Dosage: 10 MILLIGRAM, QD, FOURTH REGIMEN
     Route: 065
  8. DEXAMETHASONE [Suspect]
     Active Substance: DEXAMETHASONE
     Dosage: 10 MILLIGRAM, QD,  FIFTH REGIMEN
     Route: 065
  9. DEXAMETHASONE [Suspect]
     Active Substance: DEXAMETHASONE
     Dosage: 10 MG, QD SECOND REGIMEN
     Route: 065
  10. DEXAMETHASONE [Suspect]
     Active Substance: DEXAMETHASONE
     Dosage: 10 MG, QD FIRST REGIMEN
     Route: 065
  11. DEXAMETHASONE [Suspect]
     Active Substance: DEXAMETHASONE
     Dosage: 10 MILLIGRAM, QD, THIRD REGIMEN
     Route: 065
  12. DEXAMETHASONE [Suspect]
     Active Substance: DEXAMETHASONE
     Dosage: 10 MILLIGRAM, QD
     Route: 065
     Dates: start: 201805
  13. NINLARO [Suspect]
     Active Substance: IXAZOMIB CITRATE
     Indication: Product used for unknown indication
     Dosage: 2.5 MG, PER WEEK (3MG)
     Route: 065
  14. NINLARO [Suspect]
     Active Substance: IXAZOMIB CITRATE
     Dosage: 5 MG, PER WEEK (3 MG)
     Route: 065
  15. NINLARO [Suspect]
     Active Substance: IXAZOMIB CITRATE
     Dosage: 1 MG, PER WEEK (3 MG) 1 MG, 1X A WEEK, 3MG
     Route: 065
  16. NINLARO [Suspect]
     Active Substance: IXAZOMIB CITRATE
     Dosage: 1 MILLIGRAM, 1 DOSE WEEKLY (1 MILLIGRAM, 1/WEEK)
     Route: 065
  17. NINLARO [Suspect]
     Active Substance: IXAZOMIB CITRATE
     Dosage: UNK, 1 MILLIGRAM, 1/WEEK
     Route: 065
  18. NINLARO [Suspect]
     Active Substance: IXAZOMIB CITRATE
     Dosage: UNK, 2.5 MILLIGRAM, 1/WEEK
     Route: 065
  19. NINLARO [Suspect]
     Active Substance: IXAZOMIB CITRATE
     Dosage: UNK, 5 MILLIGRAM, 1/WEEK
     Route: 065
  20. NINLARO [Suspect]
     Active Substance: IXAZOMIB CITRATE
     Dosage: UNK, 1 MILLIGRAM, 1/WEEK
     Route: 065
  21. NINLARO [Suspect]
     Active Substance: IXAZOMIB CITRATE
     Dosage: UNK, 2.5 MILLIGRAM, 1/WEEK
     Route: 065
  22. NINLARO [Suspect]
     Active Substance: IXAZOMIB CITRATE
     Dosage: UNK, 5 MILLIGRAM, 1/WEEK
     Route: 065
  23. NINLARO [Suspect]
     Active Substance: IXAZOMIB CITRATE
     Dosage: 3 MILLIGRAM
     Route: 065
  24. NINLARO [Suspect]
     Active Substance: IXAZOMIB CITRATE
     Dosage: UNK
     Route: 065
  25. ACYCLOVIR [Suspect]
     Active Substance: ACYCLOVIR
     Indication: Product used for unknown indication
     Dosage: 40 MG, , FIRST REGIMEN, FREQUENCY TEXT: NOT PROVIDED3
     Route: 065
  26. ACYCLOVIR [Suspect]
     Active Substance: ACYCLOVIR
     Dosage: 10 MG, QD
     Route: 065
  27. ACYCLOVIR [Suspect]
     Active Substance: ACYCLOVIR
     Dosage: 40 MG SECOND REGIMEN, FREQUENCY TEXT: NOT PROVIDED
     Route: 065
  28. ACYCLOVIR [Suspect]
     Active Substance: ACYCLOVIR
     Dosage: 800 MILLIGRAM, 1 DOSE DAILY (400 MILLIGRAM, TWO TIMES A DAY (800 MG ONCE A DAY))
     Route: 065
  29. LANSOPRAZOLE [Suspect]
     Active Substance: LANSOPRAZOLE
     Indication: Product used for unknown indication
     Dosage: 30 MG, QD
     Route: 065
  30. LANSOPRAZOLE [Suspect]
     Active Substance: LANSOPRAZOLE
     Dosage: 30 MG, QD
     Route: 065
  31. LANSOPRAZOLE [Suspect]
     Active Substance: LANSOPRAZOLE
     Dosage: 3 MILLIGRAM
     Route: 065
  32. LANSOPRAZOLE [Suspect]
     Active Substance: LANSOPRAZOLE
     Dosage: DOSAGE TEXT: 2 MILLIGRAM; NUMBER OF SEPARATE DOSES:
     Route: 065
  33. LENALIDOMIDE [Suspect]
     Active Substance: LENALIDOMIDE
     Indication: Product used for unknown indication
     Dosage: 10 MG, 1X PER DAY
     Route: 048
  34. IXAZOMIB [Suspect]
     Active Substance: IXAZOMIB
     Indication: Product used for unknown indication
     Dosage: 2.5 MILLIGRAM, 1 DOSE WEEKLY
     Route: 048
     Dates: start: 201805
  35. IXAZOMIB [Suspect]
     Active Substance: IXAZOMIB
     Indication: Plasma cell myeloma refractory
  36. METOCLOPRAMIDE [Suspect]
     Active Substance: METOCLOPRAMIDE
     Indication: Product used for unknown indication
     Dosage: 10 MILLIGRAM, QD
     Route: 065
  37. REVLIMID [Suspect]
     Active Substance: LENALIDOMIDE
     Indication: Plasma cell myeloma refractory
     Dosage: 10 MILLIGRAM, QD
     Route: 048
     Dates: start: 201805
  38. REVLIMID [Suspect]
     Active Substance: LENALIDOMIDE
     Dosage: 10 MILLIGRAM, 1 DOSE 3 WEEKS
     Route: 065
  39. LOPERAMIDE [Suspect]
     Active Substance: LOPERAMIDE
     Indication: Product used for unknown indication
     Dosage: 2 MILLIGRAM
     Route: 065
  40. DEXAMETHASONE [Concomitant]
     Active Substance: DEXAMETHASONE
     Indication: Product used for unknown indication
     Dosage: DOSAGE TEXT: 10 MILLIGRAM; NUMBER OF SEPARATE DOSES
     Route: 065

REACTIONS (7)
  - Inappropriate schedule of product administration [Unknown]
  - Product dose omission issue [Unknown]
  - Panic attack [Not Recovered/Not Resolved]
  - Chronic obstructive pulmonary disease [Unknown]
  - Pain [Not Recovered/Not Resolved]
  - Peripheral swelling [Unknown]
  - Swelling [Unknown]
